FAERS Safety Report 4972061-2 (Version None)
Quarter: 2006Q2

REPORT INFORMATION
  Report Type: 
  Country: None (occurrence: None)
  Receive Date: 20060413
  Receipt Date: 20060407
  Transmission Date: 20061013
  Serious: Yes (Hospitalization)
  Sender: FDA-Public Use
  Company Number: US-MERCK-0604USA01112

PATIENT
  Age: 61 Year
  Sex: Female

DRUGS (4)
  1. ZETIA [Suspect]
     Indication: BLOOD CHOLESTEROL
     Route: 048
     Dates: start: 20040101, end: 20050101
  2. COZAAR [Concomitant]
     Route: 065
  3. PLAVIX [Concomitant]
     Route: 065
  4. LIPITOR [Concomitant]
     Route: 065

REACTIONS (1)
  - PAIN [None]
